FAERS Safety Report 6919679-5 (Version None)
Quarter: 2010Q3

REPORT INFORMATION
  Report Type: 
  Country: None (occurrence: None)
  Receive Date: 20100811
  Receipt Date: 20100805
  Transmission Date: 20110219
  Serious: Yes (Hospitalization)
  Sender: FDA-Public Use
  Company Number: DE-BRISTOL-MYERS SQUIBB COMPANY-15229016

PATIENT
  Age: 63 Year
  Sex: Female
  Weight: 76 kg

DRUGS (4)
  1. ORENCIA [Suspect]
     Indication: RHEUMATOID ARTHRITIS
     Dosage: DOSAGE: 750MG FOR 2 OR 4 WEEKS
     Route: 051
     Dates: start: 20100629
  2. METHOTREXATE [Suspect]
     Indication: RHEUMATOID ARTHRITIS
     Dosage: 1DF=10.0 WEEK [UNIT NI]
     Route: 051
     Dates: start: 20080129
  3. SYNTESTAN [Suspect]
     Indication: RHEUMATOID ARTHRITIS
     Dosage: 1DF=2.5 [UNIT NI]
     Route: 048
     Dates: start: 20091201
  4. CALCIVIT [Concomitant]
     Indication: RHEUMATOID ARTHRITIS
     Dosage: 1DF=800/1000[UNIT NI]
     Route: 048
     Dates: start: 20080129

REACTIONS (4)
  - BRONCHITIS [None]
  - HYPOKALAEMIA [None]
  - RESPIRATORY FAILURE [None]
  - URINARY TRACT INFECTION [None]
